FAERS Safety Report 10161873 (Version 1)
Quarter: 2014Q2

REPORT INFORMATION
  Report Type: Spontaneous
  Country: CA (occurrence: CA)
  Receive Date: 20140509
  Receipt Date: 20140509
  Transmission Date: 20141212
  Serious: Yes (Other)
  Sender: FDA-Public Use
  Company Number: CA-JNJFOC-20140421107

PATIENT
  Sex: Female
  Weight: 81.65 kg

DRUGS (1)
  1. ORTHO 1/35 [Suspect]
     Indication: CONTRACEPTION
     Dates: start: 1997, end: 2009

REACTIONS (3)
  - Abortion spontaneous [Unknown]
  - Exposure during pregnancy [Recovered/Resolved]
  - Pregnancy on oral contraceptive [Recovered/Resolved]
